FAERS Safety Report 5293925-9 (Version None)
Quarter: 2007Q2

REPORT INFORMATION
  Report Type: 
  Country: None (occurrence: None)
  Receive Date: 20070411
  Receipt Date: 20070330
  Transmission Date: 20071010
  Serious: Yes (Hospitalization)
  Sender: FDA-Public Use
  Company Number: DK-PFIZER INC-2007026448

PATIENT
  Age: 41 Year
  Sex: Female
  Weight: 65 kg

DRUGS (1)
  1. MISOPROSTOL [Suspect]
     Indication: ABORTION INDUCED
     Route: 067
     Dates: start: 20060303, end: 20060303

REACTIONS (2)
  - HAEMORRHAGE [None]
  - RETAINED PRODUCTS OF CONCEPTION [None]
